FAERS Safety Report 21672064 (Version 1)
Quarter: 2022Q4

REPORT INFORMATION
  Report Type: Spontaneous
  Country: DE (occurrence: DE)
  Receive Date: 20221202
  Receipt Date: 20221202
  Transmission Date: 20230113
  Serious: Yes (Hospitalization)
  Sender: FDA-Public Use
  Company Number: None

PATIENT
  Age: 54 Year
  Sex: Female
  Weight: 55 kg

DRUGS (11)
  1. FLUOROURACIL [Suspect]
     Active Substance: FLUOROURACIL
     Indication: Product used for unknown indication
  2. OXALIPLATIN [Suspect]
     Active Substance: OXALIPLATIN
     Indication: Product used for unknown indication
     Dosage: 100 MG/M2
  3. PREGABALIN [Suspect]
     Active Substance: PREGABALIN
     Indication: Product used for unknown indication
     Dosage: 25 MG, 1-0-1-0
  4. LEUCOVORIN [Suspect]
     Active Substance: LEUCOVORIN
     Indication: Product used for unknown indication
     Dosage: 400 MG/M2
  5. GRANISETRON [Concomitant]
     Active Substance: GRANISETRON
     Dosage: 2 MG, AS REQUIRED
  6. METOCLOPRAMIDE [Concomitant]
     Active Substance: METOCLOPRAMIDE
     Dosage: 10 MG, 1-0-1-0
  7. ARGININE [Concomitant]
     Active Substance: ARGININE
     Dosage: 1300 KCAL / DAY, SOLUTION FOR PARENTERAL NUTRITION
  8. PANTOPRAZOLE [Concomitant]
     Active Substance: PANTOPRAZOLE
     Dosage: 40 MG, 1-0-0-0
  9. OLANZAPINE [Concomitant]
     Active Substance: OLANZAPINE
     Dosage: 5 MG, REQUIREMENT
  10. CAPROS [Concomitant]
     Dosage: 5 MG, AS REQUIRED
  11. FENTANYL [Concomitant]
     Active Substance: FENTANYL
     Dosage: 50 MCG / H, EVERY 3 DAYS

REACTIONS (5)
  - Product prescribing error [Unknown]
  - Cough [Unknown]
  - Diarrhoea [Unknown]
  - Facial pain [Unknown]
  - Abdominal pain [Unknown]

NARRATIVE: CASE EVENT DATE: 20210129
